FAERS Safety Report 13615138 (Version 1)
Quarter: 2017Q2

REPORT INFORMATION
  Report Type: Report from Study
  Country: US (occurrence: US)
  Receive Date: 20170606
  Receipt Date: 20170606
  Transmission Date: 20170830
  Serious: Yes (Death, Hospitalization, Other)
  Sender: FDA-Public Use
  Company Number: US-JNJFOC-20170507211

PATIENT
  Age: 28 Year
  Sex: Female

DRUGS (11)
  1. SENNOSIDE A+B [Concomitant]
     Active Substance: SENNOSIDES A AND B
     Route: 048
  2. DIPHENHYDRAMINE. [Concomitant]
     Active Substance: DIPHENHYDRAMINE
  3. RITUXAN [Concomitant]
     Active Substance: RITUXIMAB
  4. LOPRESSOR [Concomitant]
     Active Substance: METOPROLOL TARTRATE
     Route: 042
  5. SCOPOLAMINE [Concomitant]
     Active Substance: SCOPOLAMINE
     Dosage: 1P, UNK
     Route: 062
  6. FENTANYL. [Concomitant]
     Active Substance: FENTANYL
     Dosage: 1 UNK
     Route: 062
  7. BLINATUMOMAB [Suspect]
     Active Substance: BLINATUMOMAB
     Indication: PRODUCT USED FOR UNKNOWN INDICATION
  8. IMBRUVICA [Suspect]
     Active Substance: IBRUTINIB
     Indication: DIFFUSE LARGE B-CELL LYMPHOMA
     Route: 048
  9. LIDOCAINE. [Concomitant]
     Active Substance: LIDOCAINE
     Route: 048
  10. MAALOX ANTACID [Concomitant]
     Active Substance: ALUMINUM HYDROXIDE\DIMETHICONE\MAGNESIUM HYDROXIDE
  11. IMBRUVICA [Suspect]
     Active Substance: IBRUTINIB
     Indication: DIFFUSE LARGE B-CELL LYMPHOMA
     Route: 048
     Dates: end: 2017

REACTIONS (19)
  - Muscle twitching [Unknown]
  - Lung consolidation [Unknown]
  - Bacterial test positive [Unknown]
  - Intra-abdominal fluid collection [Unknown]
  - Tumour ulceration [Unknown]
  - Pleural effusion [Unknown]
  - Platelet count decreased [Unknown]
  - Off label use [Recovered/Resolved]
  - Retroperitoneal mass [Unknown]
  - Obstruction gastric [Unknown]
  - Blood potassium decreased [Unknown]
  - Haematemesis [Unknown]
  - Hyponatraemia [Recovering/Resolving]
  - Pyrexia [Not Recovered/Not Resolved]
  - Anaemia [Unknown]
  - Disease progression [Fatal]
  - Colitis [Unknown]
  - Tumour haemorrhage [Unknown]
  - Product use in unapproved indication [Recovered/Resolved]

NARRATIVE: CASE EVENT DATE: 20170320
